FAERS Safety Report 8334371-0 (Version None)
Quarter: 2012Q2

REPORT INFORMATION
  Report Type: 
  Country: None (occurrence: None)
  Receive Date: 20120503
  Receipt Date: 20120423
  Transmission Date: 20120825
  Serious: Yes (Hospitalization)
  Sender: FDA-Public Use
  Company Number: US-ELI_LILLY_AND_COMPANY-US201204008263

PATIENT
  Sex: Male

DRUGS (2)
  1. ALIMTA [Suspect]
     Dosage: UNK
     Dates: end: 20120222
  2. ALIMTA [Suspect]
     Dosage: UNK
     Dates: start: 20111215, end: 20120101

REACTIONS (2)
  - DRUG INEFFECTIVE [None]
  - HOSPITALISATION [None]
